FAERS Safety Report 14884351 (Version 2)
Quarter: 2018Q2

REPORT INFORMATION
  Report Type: Report from Study
  Country: US (occurrence: US)
  Receive Date: 20180511
  Receipt Date: 20180628
  Transmission Date: 20180711
  Serious: Yes (Hospitalization, Other)
  Sender: FDA-Public Use
  Company Number: US-ACTELION-A-US2017-160842

PATIENT
  Age: 15 Month
  Sex: Female
  Weight: 9.7 kg

DRUGS (2)
  1. TRACLEER [Suspect]
     Active Substance: BOSENTAN
     Dosage: 20 MG, Q12HRS
     Route: 049
  2. TRACLEER [Suspect]
     Active Substance: BOSENTAN
     Indication: PULMONARY ARTERIAL HYPERTENSION
     Dosage: 8.75 MG, BID
     Route: 048
     Dates: start: 20170321

REACTIONS (5)
  - Respiratory distress [Unknown]
  - Neoplasm malignant [Unknown]
  - Transplant evaluation [Unknown]
  - Chronic respiratory failure [Unknown]
  - Alopecia [Unknown]
